FAERS Safety Report 8171304-4 (Version None)
Quarter: 2012Q1

REPORT INFORMATION
  Report Type: 
  Country: None (occurrence: None)
  Receive Date: 20120228
  Receipt Date: 20120221
  Transmission Date: 20120608
  Serious: Yes (Hospitalization)
  Sender: FDA-Public Use
  Company Number: GB-MERCK-1202USA03411

PATIENT
  Age: 71 Year
  Sex: Male
  Weight: 79 kg

DRUGS (11)
  1. ASPIRIN [Concomitant]
     Indication: PROPHYLAXIS
     Route: 048
  2. MICONAZOLE [Concomitant]
     Indication: PAIN
     Route: 065
  3. ACYCLOVIR [Concomitant]
     Indication: PROPHYLAXIS
     Route: 048
     Dates: start: 20110607
  4. CORSODYL [Concomitant]
     Indication: PROPHYLAXIS
     Route: 065
     Dates: start: 20110706
  5. NYSTATIN [Concomitant]
     Indication: PROPHYLAXIS
     Route: 048
     Dates: start: 20110607
  6. FLUTICASONE PROPIONATE/SALMETEROL [Concomitant]
     Indication: ASTHMA
     Route: 065
  7. DISOPYRAMIDE [Concomitant]
     Indication: ARRHYTHMIA
     Route: 048
  8. VELCADE [Suspect]
     Indication: MULTIPLE MYELOMA
     Route: 058
     Dates: start: 20110607, end: 20111121
  9. DECADRON [Suspect]
     Indication: MULTIPLE MYELOMA
     Route: 048
     Dates: start: 20110607, end: 20111121
  10. OMEPRAZOLE [Concomitant]
     Indication: PROPHYLAXIS
     Route: 048
     Dates: start: 20110607
  11. ONDANSETRON [Concomitant]
     Route: 048
     Dates: start: 20110607

REACTIONS (3)
  - INFECTION [None]
  - OFF LABEL USE [None]
  - PYREXIA [None]
